FAERS Safety Report 4515636-7 (Version None)
Quarter: 2004Q4

REPORT INFORMATION
  Report Type: 
  Country: None (occurrence: None)
  Receive Date: 20041126
  Receipt Date: 20041112
  Transmission Date: 20050328
  Serious: Yes (Other)
  Sender: FDA-Public Use
  Company Number: 2004093336

PATIENT
  Age: 59 Year
  Sex: Male

DRUGS (9)
  1. GABAPENTIN (GABAPENTIN) [Suspect]
     Indication: OSTEOARTHRITIS
     Dosage: (1800 MG), ORAL
     Route: 048
     Dates: start: 20010101, end: 20041001
  2. LANSOPRAZOLE [Concomitant]
  3. FLUOXETINE HYDROCHLORIDE [Concomitant]
  4. APOREX (DEXTROPROPOXYPHENE HYDROCHLORIDE, PARACETAMOL) [Concomitant]
  5. ZOPICLONE (ZOPICLONE) [Concomitant]
  6. DICLOFENAC 9DICLOFENAC0 [Concomitant]
  7. NEFOPAM HYDROCHLORIDE NEFOPAM HYDROCHLORIDE) [Concomitant]
  8. BUPRENORPHINE HYDROCHLORIDE [Concomitant]
  9. AMITRIPTYLINE HCL [Concomitant]

REACTIONS (2)
  - GINGIVAL ATROPHY [None]
  - TOOTH LOSS [None]
